FAERS Safety Report 4462030-3 (Version None)
Quarter: 2004Q3

REPORT INFORMATION
  Report Type: 
  Country: None (occurrence: None)
  Receive Date: 20040924
  Receipt Date: 20040924
  Transmission Date: 20050211
  Serious: Yes (Hospitalization)
  Sender: FDA-Public Use
  Company Number: None

PATIENT
  Age: 58 Year
  Sex: Male

DRUGS (3)
  1. CELEBREX [Suspect]
     Indication: CARCINOMA
     Dosage: BID PER PEG
     Dates: start: 20040823, end: 20040923
  2. CARBOPLATIN [Concomitant]
  3. TAXOL [Concomitant]

REACTIONS (3)
  - CATHETER RELATED COMPLICATION [None]
  - CONSTIPATION [None]
  - ILEUS [None]
